FAERS Safety Report 7269283-7 (Version None)
Quarter: 2011Q1

REPORT INFORMATION
  Report Type: 
  Country: None (occurrence: None)
  Receive Date: 20110202
  Receipt Date: 20110119
  Transmission Date: 20110831
  Serious: Yes (Hospitalization)
  Sender: FDA-Public Use
  Company Number: US-ELI_LILLY_AND_COMPANY-US200911003761

PATIENT
  Sex: Female

DRUGS (8)
  1. FORTEO [Suspect]
     Indication: OSTEOPOROSIS
     Dosage: 20 UG, DAILY (1/D)
     Dates: start: 20091112
  2. PREDNISONE [Concomitant]
     Dosage: 5 MG, DAILY (1/D)
  3. PLAQUENIL [Concomitant]
     Dosage: UNK, 1 EVERY OTHER DAY
     Dates: start: 20100101
  4. FOLIC ACID [Concomitant]
     Dosage: 2 MG, 1/D
  5. METHOTREXATE [Concomitant]
     Dosage: 17.5 MG, WEEKLY (1/W)
     Dates: start: 19910101
  6. FORTEO [Suspect]
  7. VITAMIN D [Concomitant]
  8. VITAMINS NOS [Concomitant]
     Dosage: UNK, DAILY (1/D)

REACTIONS (6)
  - INJECTION SITE ERYTHEMA [None]
  - HEADACHE [None]
  - INJECTION SITE PAIN [None]
  - THYROID NEOPLASM [None]
  - HEART RATE INCREASED [None]
  - ANXIETY [None]
